FAERS Safety Report 4898974-8 (Version None)
Quarter: 2006Q1

REPORT INFORMATION
  Report Type: 
  Country: None (occurrence: None)
  Receive Date: 20060127
  Receipt Date: 20060110
  Transmission Date: 20060701
  Serious: Yes (Hospitalization)
  Sender: FDA-Public Use
  Company Number: MEDI-0004045

PATIENT
  Sex: Male

DRUGS (14)
  1. ETHYOL [Suspect]
     Indication: CHEMOTHERAPY
     Dosage: 500 MG, GIVEN 20 MINUTE PRIOR TO RADIATION DAILY, SUBCUTANEOUS
     Route: 058
     Dates: start: 20050824, end: 20050920
  2. ETHYOL [Suspect]
     Indication: RADIOTHERAPY
     Dosage: 500 MG, GIVEN 20 MINUTE PRIOR TO RADIATION DAILY, SUBCUTANEOUS
     Route: 058
     Dates: start: 20050824, end: 20050920
  3. RADIATION THERAPY [Concomitant]
  4. CISPLATIN [Concomitant]
  5. FLUOROURACIL [Concomitant]
  6. EMEND [Concomitant]
  7. KYTRIL [Concomitant]
  8. DEXAMETHASONE [Concomitant]
  9. LORAZEPAM [Concomitant]
  10. COMPAZINE [Concomitant]
  11. PREVACID [Concomitant]
  12. ZOFRAN [Concomitant]
  13. PHENERGAN [Concomitant]
  14. TPN (PYRIDOXINE HYDROCHLORIDE, TYROSINE, NICOTINAMIDE) [Concomitant]

REACTIONS (20)
  - ANXIETY [None]
  - BLOOD CULTURE POSITIVE [None]
  - CATHETER RELATED INFECTION [None]
  - CHOLECYSTITIS INFECTIVE [None]
  - CONSTIPATION [None]
  - DEHYDRATION [None]
  - EROSIVE OESOPHAGITIS [None]
  - FUNGAL INFECTION [None]
  - HEART RATE INCREASED [None]
  - HYPOTENSION [None]
  - LIP ULCERATION [None]
  - NAUSEA [None]
  - ODYNOPHAGIA [None]
  - ORAL MUCOSAL EXFOLIATION [None]
  - PHARYNGOLARYNGEAL PAIN [None]
  - RADIATION MUCOSITIS [None]
  - SPUTUM PURULENT [None]
  - STAPHYLOCOCCAL INFECTION [None]
  - STOMATITIS [None]
  - VOMITING [None]
